FAERS Safety Report 7476298-2 (Version None)
Quarter: 2011Q2

REPORT INFORMATION
  Report Type: 
  Country: None (occurrence: None)
  Receive Date: 20110512
  Receipt Date: 20110509
  Transmission Date: 20111010
  Serious: Yes (Life-Threatening, Hospitalization)
  Sender: FDA-Public Use
  Company Number: IT-ASTRAZENECA-2011SE15798

PATIENT
  Age: 25718 Day
  Sex: Male
  Weight: 76 kg

DRUGS (1)
  1. VANDETANIB [Suspect]
     Indication: MALIGNANT HEPATOBILIARY NEOPLASM
     Route: 048
     Dates: start: 20110224, end: 20110310

REACTIONS (1)
  - PULMONARY EMBOLISM [None]
